FAERS Safety Report 23281188 (Version 1)
Quarter: 2023Q4

REPORT INFORMATION
  Report Type: Spontaneous
  Country: IT (occurrence: IT)
  Receive Date: 20231211
  Receipt Date: 20231211
  Transmission Date: 20240110
  Serious: Yes (Hospitalization)
  Sender: FDA-Public Use
  Company Number: IT-SANDOZ-SDZ2023IT065279

PATIENT
  Age: 64 Year
  Sex: Male

DRUGS (19)
  1. CARBOPLATIN [Suspect]
     Active Substance: CARBOPLATIN
     Indication: Non-small cell lung cancer
     Dosage: UNK, FREQUENZA SOMMINISTRAZIONE: CICLICAVIA SOMMINISTRAZIONE: ENDOVENOSA
     Route: 042
     Dates: start: 20230329, end: 20230329
  2. KEYTRUDA [Suspect]
     Active Substance: PEMBROLIZUMAB
     Indication: Non-small cell lung cancer
     Dosage: 200 MG, DOSAGGIO: 200UNITA DI MISURA: MILLIGRAMMIFREQUENZA SOMMINISTRAZIONE: CICLICAVIA SOMMINISTRAZ
     Route: 042
     Dates: start: 20230329, end: 20230329
  3. PEMETREXED [Suspect]
     Active Substance: PEMETREXED
     Indication: Non-small cell lung cancer
     Dosage: UNK, FREQUENZA SOMMINISTRAZIONE: CICLICAVIA SOMMINISTRAZIONE: ENDOVENOSA
     Route: 042
     Dates: start: 20230329, end: 20230329
  4. CYANOCOBALAMIN\FOLIC ACID\PYRIDOXINE HYDROCHLORIDE [Concomitant]
     Active Substance: CYANOCOBALAMIN\FOLIC ACID\PYRIDOXINE HYDROCHLORIDE
     Indication: Folate deficiency
     Dosage: 5 MG, DOSAGGIO: 5UNITA DI MISURA: MILLIGRAMMIVIA SOMMINISTRAZIONE: ORALE
     Route: 048
  5. BREVA [Concomitant]
     Active Substance: ALBUTEROL\IPRATROPIUM
     Indication: Obstructive airways disorder
     Dosage: UNK, VIA SOMMINISTRAZIONE: INALAZIONE ROUTE OF ADMIN (FREE TEXT): RESPIRATORY (INHALATION)
     Route: 055
  6. Dobetin [Concomitant]
     Indication: Anaemia folate deficiency
     Dosage: 1000 UG, DOSAGGIO: 1000UNITA DI MISURA: MICROGRAMMIVIA SOMMINISTRAZIONE: INTRAMUSCOLARE
     Route: 030
  7. FLUIMUCIL [Concomitant]
     Active Substance: ACETYLCYSTEINE
     Dosage: UNK, STRENGTH: 300 MG
     Route: 065
  8. FLUIMUCIL [Concomitant]
     Active Substance: ACETYLCYSTEINE
     Indication: Obstructive airways disorder
     Dosage: UNK, VIA SOMMINISTRAZIONE: INALAZIONE ROUTE OF ADMIN (FREE TEXT): RESPIRATORY (INHALATION)
     Route: 055
  9. FLUTICASONE PROPIONATE [Concomitant]
     Active Substance: FLUTICASONE PROPIONATE
     Indication: Obstructive airways disorder
     Dosage: UNK, VIA SOMMINISTRAZIONE: INALAZIONE ROUTE OF ADMIN (FREE TEXT): RESPIRATORY (INHALATION)
     Route: 055
  10. UMECLIDINIUM BROMIDE\VILANTEROL TRIFENATATE [Concomitant]
     Active Substance: UMECLIDINIUM BROMIDE\VILANTEROL TRIFENATATE
     Indication: Obstructive airways disorder
     Dosage: 1 DF, DOSAGGIO: 1 PUFFUNITA DI MISURA: UNITA POSOLOGICAVIA SOMMINISTRAZIONE: INALAZIONE ROUTE OF ADM
     Route: 055
  11. BROMAZEPAM [Concomitant]
     Active Substance: BROMAZEPAM
     Dosage: UNK, STRENGTH: 1.5 MG
     Route: 065
  12. BROMAZEPAM [Concomitant]
     Active Substance: BROMAZEPAM
     Indication: Anxiety
     Dosage: UNK, UNITA DI MISURA: GOCCEVIA SOMMINISTRAZIONE: ORALE
     Route: 048
  13. ESOMEPRAZOLE [Concomitant]
     Active Substance: ESOMEPRAZOLE
     Indication: Gastrooesophageal reflux disease
     Dosage: 20 MG, DOSAGGIO: 20UNITA DI MISURA: MILLIGRAMMIVIA SOMMINISTRAZIONE: ORALE
     Route: 048
  14. ESOMEPRAZOLE [Concomitant]
     Active Substance: ESOMEPRAZOLE
     Dosage: UNK, STRENGTH: 10 MG
     Route: 065
  15. METFORMIN HYDROCHLORIDE [Concomitant]
     Active Substance: METFORMIN HYDROCHLORIDE
     Indication: Type 2 diabetes mellitus
     Dosage: 1000 MG, DOSAGGIO: 1000UNITA DI MISURA: MILLIGRAMMIVIA SOMMINISTRAZIONE: ORALE
     Route: 048
  16. METFORMIN HYDROCHLORIDE [Concomitant]
     Active Substance: METFORMIN HYDROCHLORIDE
     Dosage: UNK, STRENGTH: 1 G
     Route: 065
  17. METFORMIN HYDROCHLORIDE [Concomitant]
     Active Substance: METFORMIN HYDROCHLORIDE
     Dosage: UNK, STRENGTH: 500 MG
     Route: 065
  18. METFORMIN HYDROCHLORIDE [Concomitant]
     Active Substance: METFORMIN HYDROCHLORIDE
     Dosage: UNK, STRENGTH: 850 MG
     Route: 065
  19. ZOFENOPRIL [Concomitant]
     Active Substance: ZOFENOPRIL
     Indication: Hypertension
     Dosage: 30 MG, DOSAGGIO: 30UNITA DI MISURA: MILLIGRAMMIVIA SOMMINISTRAZIONE: ORALE
     Route: 048

REACTIONS (3)
  - Malaise [Recovered/Resolved]
  - Cough [Recovered/Resolved]
  - Pyrexia [Recovered/Resolved]

NARRATIVE: CASE EVENT DATE: 20230403
